FAERS Safety Report 4641014-6 (Version None)
Quarter: 2005Q2

REPORT INFORMATION
  Report Type: 
  Country: None (occurrence: None)
  Receive Date: 20050324
  Receipt Date: 20040920
  Transmission Date: 20051028
  Serious: Yes (Hospitalization)
  Sender: FDA-Public Use
  Company Number: US092229

PATIENT
  Age: 80 Year
  Sex: Female

DRUGS (4)
  1. NEUPOGEN [Suspect]
     Indication: CHEMOTHERAPY
     Dosage: 480 MCG, 1 IN 1 DAYS, SC
     Route: 058
     Dates: start: 20040908, end: 20040909
  2. CISPLATIN [Concomitant]
  3. ETOPOSIDE [Concomitant]
  4. PROCRIT [Concomitant]

REACTIONS (5)
  - CONFUSIONAL STATE [None]
  - FALL [None]
  - HYPERSENSITIVITY [None]
  - PRURITUS [None]
  - RASH [None]
